FAERS Safety Report 25540505 (Version 1)
Quarter: 2025Q3

REPORT INFORMATION
  Report Type: Spontaneous
  Country: US (occurrence: None)
  Receive Date: 20250710
  Receipt Date: 20250710
  Transmission Date: 20251020
  Serious: Yes (Hospitalization)
  Sender: FDA-CTU
  Company Number: None

PATIENT
  Sex: Male

DRUGS (2)
  1. CYCLOSPORINE MODIFIED [Suspect]
     Active Substance: CYCLOSPORINE
     Indication: Lung transplant
     Dosage: 100 MG TWICE A DY ORAL
     Route: 048
     Dates: start: 20250508
  2. CYCLOSPORINE MODIFIED [Suspect]
     Active Substance: CYCLOSPORINE
     Indication: Lung transplant
     Dosage: 25 MG TWICE A DAY ORAL ?
     Route: 048
     Dates: start: 20250508

REACTIONS (3)
  - Fall [None]
  - Postoperative wound infection [None]
  - Pneumonia [None]
